FAERS Safety Report 5440798-7 (Version None)
Quarter: 2007Q3

REPORT INFORMATION
  Report Type: 
  Country: None (occurrence: None)
  Receive Date: 20070731
  Receipt Date: 20070523
  Transmission Date: 20080115
  Serious: No
  Sender: FDA-Public Use
  Company Number: US200705006170

PATIENT
  Age: 49 Year
  Sex: Female
  Weight: 100.7 kg

DRUGS (3)
  1. BYETTA [Suspect]
     Dosage: 5 UG; 10 UG, SUBCUTANEOUS
     Route: 058
     Dates: start: 20070105, end: 20070201
  2. BYETTA [Suspect]
     Dosage: 5 UG; 10 UG, SUBCUTANEOUS
     Route: 058
     Dates: start: 20070201
  3. EXENATIDE PEN (EXENATIDE PEN) [Concomitant]

REACTIONS (2)
  - ENERGY INCREASED [None]
  - WEIGHT DECREASED [None]
